FAERS Safety Report 4869779-9 (Version None)
Quarter: 2005Q4

REPORT INFORMATION
  Report Type: 
  Country: None (occurrence: None)
  Receive Date: 20051223
  Receipt Date: 20051209
  Transmission Date: 20060501
  Serious: Yes (Hospitalization)
  Sender: FDA-Public Use
  Company Number: TRP_0667_2005

PATIENT
  Age: 57 Year
  Sex: Female

DRUGS (2)
  1. RIBASPHERE [Suspect]
     Indication: HEPATITIS C
     Dosage: 400 MG BID PO
     Route: 048
     Dates: start: 20050201, end: 20050901
  2. PEG-INTRON [Suspect]
     Indication: HEPATITIS C
     Dosage: DF QWK SC
     Route: 058
     Dates: start: 20050201, end: 20050901

REACTIONS (5)
  - HAEMORRHAGE SUBCUTANEOUS [None]
  - PERIORBITAL HAEMATOMA [None]
  - PLATELET COUNT DECREASED [None]
  - RED BLOOD CELL COUNT DECREASED [None]
  - WHITE BLOOD CELL COUNT DECREASED [None]
